FAERS Safety Report 20889286 (Version 2)
Quarter: 2022Q2

REPORT INFORMATION
  Report Type: Other
  Country: CA (occurrence: CA)
  Receive Date: 20220530
  Receipt Date: 20220629
  Transmission Date: 20220721
  Serious: Yes (Other)
  Sender: FDA-Public Use
  Company Number: CA-CELLTRION INC.-2022CA007531

PATIENT

DRUGS (5)
  1. RITUXIMAB [Suspect]
     Active Substance: RITUXIMAB
     Indication: Immune thrombocytopenia
     Dosage: UNK
     Route: 065
  2. RITUXIMAB [Suspect]
     Active Substance: RITUXIMAB
     Dosage: 375 MG/M2
     Route: 065
  3. DEXAMETHASONE [Suspect]
     Active Substance: DEXAMETHASONE
     Indication: Immune thrombocytopenia
     Route: 065
  4. AMOXICILLIN [Concomitant]
     Active Substance: AMOXICILLIN
     Indication: Product used for unknown indication
     Dosage: UNK
     Route: 065
  5. TRANEXAMIC ACID [Concomitant]
     Active Substance: TRANEXAMIC ACID
     Indication: Product used for unknown indication
     Dosage: 500.0 MILLIGRAM, 3 EVERY 1 DAYS
     Route: 065

REACTIONS (7)
  - Cyanosis [Unknown]
  - Diabetes mellitus [Unknown]
  - Immune thrombocytopenia [Unknown]
  - Platelet count decreased [Unknown]
  - Abscess oral [Unknown]
  - Therapy non-responder [Unknown]
  - Off label use [Unknown]
